FAERS Safety Report 9687247 (Version 2)
Quarter: 2013Q4

REPORT INFORMATION
  Report Type: Report from Study
  Country: GB (occurrence: GB)
  Receive Date: 20131113
  Receipt Date: 20131113
  Transmission Date: 20140711
  Serious: Yes (Hospitalization, Other)
  Sender: FDA-Public Use
  Company Number: GB-ROCHE-1145477

PATIENT
  Sex: 0

DRUGS (3)
  1. RITUXIMAB [Suspect]
     Indication: MANTLE CELL LYMPHOMA
     Dosage: ON DAY 1 OF EACH CYCLE
     Route: 065
  2. CYTARABINE [Suspect]
     Indication: MANTLE CELL LYMPHOMA
     Dosage: 3 G/M 2 TWICE DAILY GIVEN ON DAYS 1 - 2 IF AGE LESS THEN 60 AND 2 G/M2 TWICE DAILY ON DAY 1-2 IF AGE
     Route: 065
  3. DEXAMETHASONE [Suspect]
     Indication: MANTLE CELL LYMPHOMA
     Dosage: ON DAY 1-4 IN 3 SITES
     Route: 048

REACTIONS (6)
  - Sepsis [Unknown]
  - Bone marrow failure [Unknown]
  - Urinary retention [Unknown]
  - Neuropathy peripheral [Unknown]
  - Mucosal inflammation [Unknown]
  - Nausea [Unknown]
